FAERS Safety Report 14584708 (Version 2)
Quarter: 2018Q1

REPORT INFORMATION
  Report Type: Report from Study
  Country: None (occurrence: BE)
  Receive Date: 20180301
  Receipt Date: 20180312
  Transmission Date: 20180509
  Serious: Yes (Hospitalization)
  Sender: FDA-Public Use
  Company Number: BE-ABBVIE-18K-013-2271173-00

PATIENT
  Age: 71 Year
  Sex: Male

DRUGS (8)
  1. PROLOPA 250 [Concomitant]
     Indication: PARKINSON^S DISEASE
     Dosage: FORM STRENGTH: 200MG/50MG?STOP DATE: PRIOR TO DUODOPA
     Route: 048
  2. PROLOPA 250 [Concomitant]
     Dosage: FORM STRENGTH: 200MG/50MG?5 TIME/DAY AS RESCUE MEDICATION
  3. DUODOPA [Suspect]
     Active Substance: CARBIDOPA\LEVODOPA
     Dosage: MD=8.5ML?CD=3.2ML/HR DURING 16HRS ?ED=1ML
     Route: 050
     Dates: start: 20180110, end: 20180308
  4. DUODOPA [Suspect]
     Active Substance: CARBIDOPA\LEVODOPA
     Dosage: MD=8.5ML?CD=3ML/HR DURING 16HRS ?ED=1ML
     Route: 050
     Dates: start: 20180308
  5. DUODOPA [Suspect]
     Active Substance: CARBIDOPA\LEVODOPA
     Indication: PARKINSON^S DISEASE
     Dosage: MD=7ML?CD=2.5ML/HR DURING 16HRS ?ED=1ML
     Route: 050
     Dates: start: 20171113, end: 20171116
  6. DUODOPA [Suspect]
     Active Substance: CARBIDOPA\LEVODOPA
     Dosage: DOSES CONTINUOUSLY MONITORED AND ADAPTED
     Route: 050
     Dates: start: 20171116, end: 20180110
  7. PANTOMED (DEXPANTHENOL) [Concomitant]
     Active Substance: DEXPANTHENOL
     Indication: PRODUCT USED FOR UNKNOWN INDICATION
  8. PRADAXA [Concomitant]
     Active Substance: DABIGATRAN ETEXILATE MESYLATE
     Indication: ANTICOAGULANT THERAPY

REACTIONS (1)
  - Respiratory disorder [Unknown]

NARRATIVE: CASE EVENT DATE: 20180223
